FAERS Safety Report 10785420 (Version 1)
Quarter: 2015Q1

REPORT INFORMATION
  Report Type: Spontaneous
  Country: JP (occurrence: JP)
  Receive Date: 20150211
  Receipt Date: 20150211
  Transmission Date: 20150721
  Serious: Yes (Other)
  Sender: FDA-Public Use
  Company Number: JP-ASTRAZENECA-2015SE10975

PATIENT
  Age: 68 Year
  Sex: Male

DRUGS (7)
  1. SUGLAT [Concomitant]
     Active Substance: IPRAGLIFLOZIN L-PROLINE
     Route: 048
  2. GLACTIV [Concomitant]
     Active Substance: SITAGLIPTIN
     Route: 048
     Dates: end: 20141216
  3. GLACTIV [Concomitant]
     Active Substance: SITAGLIPTIN
     Route: 048
  4. ONGLYZA [Suspect]
     Active Substance: SAXAGLIPTIN HYDROCHLORIDE
     Indication: DIABETES MELLITUS
     Route: 048
     Dates: start: 20141217, end: 20141220
  5. HYPOCA [Concomitant]
     Active Substance: BARNIDIPINE HYDROCHLORIDE
  6. COVERSYL [Concomitant]
     Active Substance: PERINDOPRIL
  7. AMARYL [Concomitant]
     Active Substance: GLIMEPIRIDE
     Route: 048

REACTIONS (1)
  - Epistaxis [Recovered/Resolved]

NARRATIVE: CASE EVENT DATE: 20141218
